FAERS Safety Report 6550020-6 (Version None)
Quarter: 2010Q1

REPORT INFORMATION
  Report Type: 
  Country: None (occurrence: None)
  Receive Date: 20100125
  Receipt Date: 20100111
  Transmission Date: 20100710
  Serious: Yes (Hospitalization)
  Sender: FDA-Public Use
  Company Number: ES-JNJFOC-20100109299

PATIENT
  Age: 49 Year
  Sex: Male

DRUGS (5)
  1. ADOLONTA [Suspect]
     Indication: ANALGESIC THERAPY
     Route: 048
  2. ZALDIAR [Suspect]
     Indication: ANALGESIC THERAPY
     Route: 048
  3. GEMCITABINE [Suspect]
     Indication: LUNG ADENOCARCINOMA
     Route: 042
  4. CISPLATIN [Suspect]
     Indication: LUNG ADENOCARCINOMA
     Route: 042
  5. NEOBRUFEN [Suspect]
     Indication: ANALGESIC THERAPY
     Route: 048

REACTIONS (2)
  - RENAL FAILURE ACUTE [None]
  - VOMITING [None]
